FAERS Safety Report 24388061 (Version 1)
Quarter: 2024Q4

REPORT INFORMATION
  Report Type: Spontaneous
  Country: US (occurrence: US)
  Receive Date: 20241002
  Receipt Date: 20241002
  Transmission Date: 20250115
  Serious: Yes (Other)
  Sender: INCYTE
  Company Number: US-INCYTE CORPORATION-2024IN010244

PATIENT

DRUGS (1)
  1. JAKAFI [Suspect]
     Active Substance: RUXOLITINIB
     Indication: Breast cancer female
     Dosage: 5 MILLIGRAM, BID
     Route: 048

REACTIONS (3)
  - Spinal compression fracture [Unknown]
  - Fall [Unknown]
  - Off label use [Unknown]
